FAERS Safety Report 7593607-4 (Version None)
Quarter: 2011Q3

REPORT INFORMATION
  Report Type: 
  Country: None (occurrence: None)
  Receive Date: 20110706
  Receipt Date: 20110622
  Transmission Date: 20111222
  Serious: Yes (Other)
  Sender: FDA-Public Use
  Company Number: PHHY2011AT55173

PATIENT
  Age: 84 Year
  Sex: Female

DRUGS (1)
  1. AMIODARONE HYDROCHLORIDE [Suspect]
     Dosage: 6 DF, ONCE/SINGLE
     Route: 042

REACTIONS (5)
  - AGITATION [None]
  - HYPOTENSION [None]
  - DRUG ADMINISTRATION ERROR [None]
  - ATRIOVENTRICULAR BLOCK SECOND DEGREE [None]
  - BRONCHOSPASM [None]
